FAERS Safety Report 4503215-7 (Version None)
Quarter: 2004Q4

REPORT INFORMATION
  Report Type: 
  Country: None (occurrence: None)
  Receive Date: 20041112
  Receipt Date: 20041102
  Transmission Date: 20050328
  Serious: Yes (Hospitalization)
  Sender: FDA-Public Use
  Company Number: 2004242870GB

PATIENT
  Age: 73 Year
  Sex: Male

DRUGS (4)
  1. BEXTRA [Suspect]
     Indication: ARTHRITIS
     Dosage: 20 MG, QD, ORAL
     Route: 048
  2. SIMVASTATIN [Concomitant]
  3. METFORMIN HCL [Concomitant]
  4. CLOPIDOGREL          (CLOPIDOGREL) [Concomitant]

REACTIONS (2)
  - CEREBRAL INFARCTION [None]
  - ISCHAEMIC STROKE [None]
